FAERS Safety Report 7454718-7 (Version None)
Quarter: 2011Q2

REPORT INFORMATION
  Report Type: 
  Country: None (occurrence: None)
  Receive Date: 20110503
  Receipt Date: 20100322
  Transmission Date: 20111010
  Serious: Yes (Other)
  Sender: FDA-Public Use
  Company Number: US-PFIZER INC-2010036573

PATIENT
  Age: 29 Year
  Sex: Female

DRUGS (2)
  1. DEPO-PROVERA [Suspect]
     Dosage: UNK
     Dates: start: 19990101, end: 20020101
  2. DEPO-PROVERA [Suspect]
     Dosage: UNK
     Dates: start: 20060101

REACTIONS (1)
  - OSTEOPENIA [None]
